FAERS Safety Report 18175738 (Version 19)
Quarter: 2022Q3

REPORT INFORMATION
  Report Type: Report from Study
  Country: US (occurrence: US)
  Receive Date: 20200820
  Receipt Date: 20220913
  Transmission Date: 20221027
  Serious: Yes (Hospitalization, Other)
  Sender: FDA-Public Use
  Company Number: US-SHIRE-US202026750

PATIENT
  Sex: Female
  Weight: 59 kg

DRUGS (85)
  1. HUMAN IMMUNOGLOBULIN G [Suspect]
     Active Substance: HUMAN IMMUNOGLOBULIN G
     Indication: Dermatomyositis
     Dosage: 40 GRAM, Q3WEEKS
     Route: 042
     Dates: start: 20130128
  2. HUMAN IMMUNOGLOBULIN G [Suspect]
     Active Substance: HUMAN IMMUNOGLOBULIN G
     Indication: Systemic lupus erythematosus
     Dosage: 20 GRAM, 1/WEEK
     Route: 042
     Dates: start: 20130128
  3. HUMAN IMMUNOGLOBULIN G [Suspect]
     Active Substance: HUMAN IMMUNOGLOBULIN G
     Indication: Polymyositis
     Dosage: 20 GRAM, 1/WEEK
     Route: 042
     Dates: start: 20130128
  4. DIPHENHYDRAMINE [Concomitant]
     Active Substance: DIPHENHYDRAMINE
     Route: 065
  5. SULFAMETHOXAZOLE AND TRIMETHOPRIM [Concomitant]
     Active Substance: SULFAMETHOXAZOLE\TRIMETHOPRIM
  6. LYRICA [Concomitant]
     Active Substance: PREGABALIN
     Route: 065
  7. ONDANSETRON [Concomitant]
     Active Substance: ONDANSETRON
     Route: 065
  8. NITROSTAT [Concomitant]
     Active Substance: NITROGLYCERIN
     Route: 065
  9. CHLORMEZANONE [Concomitant]
     Active Substance: CHLORMEZANONE
     Route: 065
  10. Calcium plus magnesium [Concomitant]
     Route: 065
  11. LEVOTHYROXINE SODIUM [Concomitant]
     Active Substance: LEVOTHYROXINE SODIUM
     Route: 065
  12. EPINEPHRINE [Concomitant]
     Active Substance: EPINEPHRINE
     Route: 065
  13. SODIUM CHLORIDE [Concomitant]
     Active Substance: SODIUM CHLORIDE
     Route: 065
  14. RAMIPRIL [Concomitant]
     Active Substance: RAMIPRIL
     Route: 065
  15. FLUTICASONE [Concomitant]
     Active Substance: FLUTICASONE
     Route: 065
  16. OXYCODONE AND ACETAMINOPHEN [Concomitant]
     Active Substance: ACETAMINOPHEN\OXYCODONE HYDROCHLORIDE
     Route: 065
  17. BIFIDOBACTERIUM ANIMALIS LACTIS [Concomitant]
     Active Substance: BIFIDOBACTERIUM ANIMALIS LACTIS
     Route: 065
  18. DIGOXIN [Concomitant]
     Active Substance: DIGOXIN
     Route: 065
  19. SPIRONOLACTONE [Concomitant]
     Active Substance: SPIRONOLACTONE
     Route: 065
  20. ACETYLCARNITINE [Concomitant]
     Active Substance: ACETYLCARNITINE
     Route: 065
  21. PROLIA [Concomitant]
     Active Substance: DENOSUMAB
     Route: 065
  22. BIOTIN [Concomitant]
     Active Substance: BIOTIN
     Route: 065
  23. GLUCOSAMINE [Concomitant]
     Active Substance: GLUCOSAMINE
     Route: 065
  24. VITAMIN D3 [Concomitant]
     Active Substance: CHOLECALCIFEROL
     Route: 065
  25. LIDOCAINE\PRILOCAINE [Concomitant]
     Active Substance: LIDOCAINE\PRILOCAINE
     Route: 065
  26. GENTAMICIN SULFATE [Concomitant]
     Active Substance: GENTAMICIN SULFATE
  27. DOCUSATE SODIUM [Concomitant]
     Active Substance: DOCUSATE SODIUM
     Route: 065
  28. ASPIRIN [Concomitant]
     Active Substance: ASPIRIN
     Route: 065
  29. NARCAN [Concomitant]
     Active Substance: NALOXONE HYDROCHLORIDE
     Route: 065
  30. LORATADINE [Concomitant]
     Active Substance: LORATADINE
  31. CEPHALEXIN [Concomitant]
     Active Substance: CEPHALEXIN
     Route: 065
  32. BUMETANIDE [Concomitant]
     Active Substance: BUMETANIDE
     Route: 065
  33. MIDODRINE HYDROCHLORIDE [Concomitant]
     Active Substance: MIDODRINE HYDROCHLORIDE
     Route: 065
  34. CYCLOBENZAPRINE HYDROCHLORIDE [Concomitant]
     Active Substance: CYCLOBENZAPRINE HYDROCHLORIDE
  35. AMIODARONE [Concomitant]
     Active Substance: AMIODARONE
     Route: 065
  36. ABILIFY [Concomitant]
     Active Substance: ARIPIPRAZOLE
     Route: 065
  37. ATORVASTATIN CALCIUM [Concomitant]
     Active Substance: ATORVASTATIN CALCIUM
     Route: 065
  38. MIRAPEX [Concomitant]
     Active Substance: PRAMIPEXOLE DIHYDROCHLORIDE
     Route: 065
  39. MUPIROCIN [Concomitant]
     Active Substance: MUPIROCIN
  40. XANAX [Concomitant]
     Active Substance: ALPRAZOLAM
     Route: 065
  41. NAPROXEN [Concomitant]
     Active Substance: NAPROXEN
  42. COENZYME Q10 [Concomitant]
     Active Substance: DIETARY SUPPLEMENT\UBIDECARENONE
     Route: 065
  43. PROAIR HFA [Concomitant]
     Active Substance: ALBUTEROL SULFATE
     Route: 065
  44. AZATHIOPRINE [Concomitant]
     Active Substance: AZATHIOPRINE
     Route: 065
  45. PROTOPIC [Concomitant]
     Active Substance: TACROLIMUS
     Route: 065
  46. CYCLOBENZAPRINE [Concomitant]
     Active Substance: CYCLOBENZAPRINE
     Route: 065
  47. ATORVASTATIN [Concomitant]
     Active Substance: ATORVASTATIN
     Route: 065
  48. ALBUTEROL\IPRATROPIUM [Concomitant]
     Active Substance: ALBUTEROL\IPRATROPIUM
     Route: 065
  49. COREG [Concomitant]
     Active Substance: CARVEDILOL
     Route: 065
  50. DULOXETINE [Concomitant]
     Active Substance: DULOXETINE
     Route: 065
  51. OMEPRAZOLE [Concomitant]
     Active Substance: OMEPRAZOLE
     Route: 065
  52. HYDROCORTISONE [Concomitant]
     Active Substance: HYDROCORTISONE
     Route: 065
  53. ASIAN GINSENG [Concomitant]
     Active Substance: ASIAN GINSENG
  54. ALPRAZOLAM [Concomitant]
     Active Substance: ALPRAZOLAM
     Route: 065
  55. TORSEMIDE [Concomitant]
     Active Substance: TORSEMIDE
     Route: 065
  56. FUROSEMIDE [Concomitant]
     Active Substance: FUROSEMIDE
     Route: 065
  57. PREGABALIN [Concomitant]
     Active Substance: PREGABALIN
     Route: 065
  58. FERROUS SULFATE [Concomitant]
     Active Substance: FERROUS SULFATE
     Route: 065
  59. KLOR-CON M10 [Concomitant]
     Active Substance: POTASSIUM CHLORIDE
     Route: 065
  60. LEVOTHYROXINE [Concomitant]
     Active Substance: LEVOTHYROXINE
     Route: 065
  61. DOCUSATE [Concomitant]
     Active Substance: DOCUSATE
     Route: 065
  62. MSM [METHYLSULFONYLMETHANE] [Concomitant]
     Route: 065
  63. LEVACECARNINE HYDROCHLORIDE [Concomitant]
     Active Substance: LEVACECARNINE HYDROCHLORIDE
     Route: 065
  64. ALPHA LIPOIC ACID [Concomitant]
     Active Substance: .ALPHA.-LIPOIC ACID
     Route: 065
  65. MENAQUINONE 6 [Concomitant]
     Active Substance: MENAQUINONE 6
     Route: 065
  66. VALACYCLOVIR [Concomitant]
     Active Substance: VALACYCLOVIR HYDROCHLORIDE
     Route: 065
  67. PROBIOTIC GUMMIES [Concomitant]
     Route: 065
  68. CRUCIFEROUS COMPLETE [Concomitant]
     Route: 065
  69. TURMERIC CURCUMIN [CURCUMA LONGA] [Concomitant]
     Route: 065
  70. GINKGO [Concomitant]
     Active Substance: GINKGO
     Route: 065
  71. ALENDRONATE [Concomitant]
     Active Substance: ALENDRONATE SODIUM
     Route: 065
  72. OXYGEN [Concomitant]
     Active Substance: OXYGEN
     Dosage: UNK
     Route: 065
  73. ACETAMINOPHEN [Concomitant]
     Active Substance: ACETAMINOPHEN
     Route: 065
  74. ACETAMINOPHEN\OXYCODONE HYDROCHLORIDE\OXYCODONE TEREPHTHALATE [Concomitant]
     Active Substance: ACETAMINOPHEN\OXYCODONE HYDROCHLORIDE\OXYCODONE TEREPHTHALATE
     Route: 065
  75. ZOFRAN [Concomitant]
     Active Substance: ONDANSETRON HYDROCHLORIDE
     Route: 065
  76. PROPIONATE [Concomitant]
     Route: 065
  77. ALENDRONATE SODIUM [Concomitant]
     Active Substance: ALENDRONATE SODIUM
     Route: 065
  78. Ala [Concomitant]
     Route: 065
  79. GLUCOSAMINE SULFATE [Concomitant]
     Active Substance: GLUCOSAMINE SULFATE
     Route: 065
  80. FARXIGA [Concomitant]
     Active Substance: DAPAGLIFLOZIN PROPANEDIOL
     Route: 065
  81. BUMETANIDE [Concomitant]
     Active Substance: BUMETANIDE
     Dosage: UNK
     Route: 065
  82. LIDOCAINE [Concomitant]
     Active Substance: LIDOCAINE
  83. ALPHA LIPOIC ACID [Concomitant]
     Active Substance: .ALPHA.-LIPOIC ACID
  84. AMIODARONE HYDROCHLORIDE [Concomitant]
     Active Substance: AMIODARONE HYDROCHLORIDE
  85. ONDANSETRON HCL [Concomitant]
     Active Substance: ONDANSETRON HYDROCHLORIDE

REACTIONS (38)
  - Dyspnoea [Unknown]
  - Hypervolaemia [Unknown]
  - Spinal stenosis [Unknown]
  - Systemic lupus erythematosus [Unknown]
  - Condition aggravated [Unknown]
  - Sacral pain [Unknown]
  - Heart rate irregular [Unknown]
  - Infusion related reaction [Unknown]
  - Drainage [Unknown]
  - Hyperhidrosis [Unknown]
  - Cardiac disorder [Unknown]
  - Discharge [Unknown]
  - Illness [Unknown]
  - Skin infection [Unknown]
  - Skin abrasion [Unknown]
  - Aphasia [Unknown]
  - Muscle strain [Unknown]
  - Wound infection [Unknown]
  - Tenderness [Unknown]
  - Abdominal discomfort [Unknown]
  - Blood pressure decreased [Unknown]
  - Back pain [Unknown]
  - Asthenia [Unknown]
  - Pruritus [Unknown]
  - Fatigue [Unknown]
  - Diarrhoea [Recovering/Resolving]
  - Pain [Unknown]
  - Malaise [Unknown]
  - Sinusitis [Unknown]
  - Somnolence [Unknown]
  - Dizziness [Unknown]
  - Feeling abnormal [Recovering/Resolving]
  - Nausea [Unknown]
  - Pain in extremity [Unknown]
  - Erythema [Unknown]
  - Product dose omission issue [Unknown]
  - Incorrect dose administered [Unknown]
  - Off label use [Unknown]
